FAERS Safety Report 24694602 (Version 1)
Quarter: 2024Q4

REPORT INFORMATION
  Report Type: Spontaneous
  Country: AU (occurrence: AU)
  Receive Date: 20241204
  Receipt Date: 20241204
  Transmission Date: 20250114
  Serious: Yes (Other)
  Sender: JOHNSON AND JOHNSON
  Company Number: AU-JNJFOC-20230235311

PATIENT
  Age: 62 Year
  Sex: Male
  Weight: 72 kg

DRUGS (37)
  1. IMBRUVICA [Suspect]
     Active Substance: IBRUTINIB
     Indication: Mantle cell lymphoma
     Route: 048
     Dates: start: 20210120, end: 20210728
  2. BENDAMUSTINE [Suspect]
     Active Substance: BENDAMUSTINE
     Indication: Mantle cell lymphoma
     Dosage: AS A PART OF RBAC REGIMEN
     Route: 065
     Dates: start: 20210809, end: 20211015
  3. BENDAMUSTINE [Suspect]
     Active Substance: BENDAMUSTINE
     Dosage: AS A PART OF RBAC REGIMEN
     Route: 065
     Dates: start: 20210809, end: 20211015
  4. DOXORUBICIN HYDROCHLORIDE [Suspect]
     Active Substance: DOXORUBICIN HYDROCHLORIDE
     Indication: Mantle cell lymphoma
     Dosage: AS A PART OF RCHOP REGIMEN
     Route: 065
     Dates: start: 20180907, end: 20181230
  5. DOXORUBICIN HYDROCHLORIDE [Suspect]
     Active Substance: DOXORUBICIN HYDROCHLORIDE
     Dosage: AS A PART OF RCHOP REGIMEN
     Route: 065
     Dates: start: 20180907, end: 20181230
  6. CYCLOPHOSPHAMIDE [Suspect]
     Active Substance: CYCLOPHOSPHAMIDE
     Indication: Mantle cell lymphoma
     Dosage: AS A PART OF RCHOP REGIMEN
     Route: 065
     Dates: start: 20180907, end: 20181230
  7. CYCLOPHOSPHAMIDE [Suspect]
     Active Substance: CYCLOPHOSPHAMIDE
     Dosage: AS A PART OF RCHOP REGIMEN
     Route: 065
     Dates: start: 20180907, end: 20181230
  8. RITUXIMAB [Suspect]
     Active Substance: RITUXIMAB
     Indication: Mantle cell lymphoma
     Dosage: AS A PART OF RDHAOX/RCHOP REGIMEN
     Route: 065
     Dates: start: 20180907, end: 20181230
  9. RITUXIMAB [Suspect]
     Active Substance: RITUXIMAB
     Dosage: AS A PART OF RDHAOX/RCHOP REGIMEN
     Route: 065
     Dates: start: 20180907, end: 20181230
  10. RITUXIMAB [Suspect]
     Active Substance: RITUXIMAB
     Dosage: AS A PART OF RBAC REGIMEN
     Route: 065
     Dates: start: 20210809, end: 20211015
  11. RITUXIMAB [Suspect]
     Active Substance: RITUXIMAB
     Dosage: AS A PART OF RDHAOX/RCHOP REGIMEN
     Route: 065
     Dates: start: 20180907, end: 20181230
  12. VINCRISTINE [Suspect]
     Active Substance: VINCRISTINE
     Indication: Mantle cell lymphoma
     Dosage: AS A PART OF RCHOP REGIMEN
     Route: 065
     Dates: start: 20180907, end: 20181230
  13. VINCRISTINE [Suspect]
     Active Substance: VINCRISTINE
     Dosage: AS A PART OF RCHOP REGIMEN
     Route: 065
     Dates: start: 20180907, end: 20181230
  14. PREDNISONE [Suspect]
     Active Substance: PREDNISONE
     Indication: Mantle cell lymphoma
     Dosage: AS A PART OF RCHOP REGIMEN
     Route: 065
     Dates: start: 20180907, end: 20181230
  15. PREDNISONE [Suspect]
     Active Substance: PREDNISONE
     Dosage: AS A PART OF RCHOP REGIMEN
     Route: 065
     Dates: start: 20180907, end: 20181230
  16. DEXAMETHASONE [Suspect]
     Active Substance: DEXAMETHASONE
     Indication: Mantle cell lymphoma
     Dosage: AS A PART OF RDHAOX REGIMEN
     Route: 065
     Dates: start: 2018
  17. DEXAMETHASONE [Suspect]
     Active Substance: DEXAMETHASONE
     Dosage: AS A PART OF RDHAOX REGIMEN
     Route: 065
     Dates: start: 2018
  18. CYTARABINE [Suspect]
     Active Substance: CYTARABINE
     Indication: Mantle cell lymphoma
     Dosage: AS A PART OF RDHAOX REGIMEN
     Route: 065
     Dates: start: 20180907, end: 20181230
  19. CYTARABINE [Suspect]
     Active Substance: CYTARABINE
     Dosage: AS A PART OF RDHAOX REGIMEN
     Route: 065
     Dates: start: 20180907, end: 20181230
  20. CYTARABINE [Suspect]
     Active Substance: CYTARABINE
     Dosage: AS A PART OF BEAM AUTO REGIMEN
     Route: 065
     Dates: start: 20210809, end: 20211015
  21. CYTARABINE [Suspect]
     Active Substance: CYTARABINE
     Dosage: AS A PART OF RDHAOX REGIMEN
     Route: 065
     Dates: start: 20180907, end: 20181230
  22. CYTARABINE [Suspect]
     Active Substance: CYTARABINE
     Dosage: AS A PART OF RBAC REGIMEN
     Route: 065
     Dates: start: 20190201, end: 20190201
  23. CYTARABINE [Suspect]
     Active Substance: CYTARABINE
     Dosage: AS A PART OF RDHAOX REGIMEN
     Route: 065
     Dates: start: 20180907, end: 20181230
  24. OXALIPLATIN [Suspect]
     Active Substance: OXALIPLATIN
     Indication: Mantle cell lymphoma
     Dosage: AS A PART OF RDHAOX REGIMEN
     Route: 065
     Dates: start: 2018
  25. OXALIPLATIN [Suspect]
     Active Substance: OXALIPLATIN
     Dosage: AS A PART OF RDHAOX REGIMEN
     Route: 065
     Dates: start: 2018
  26. CARMUSTINE [Suspect]
     Active Substance: CARMUSTINE
     Indication: Mantle cell lymphoma
     Dosage: AS A PART OF BEAM AUTO REGIMEN
     Route: 065
     Dates: start: 20190201, end: 20190201
  27. CARMUSTINE [Suspect]
     Active Substance: CARMUSTINE
     Dosage: AS A PART OF BEAM AUTO REGIMEN
     Route: 065
     Dates: start: 20190201, end: 20190201
  28. ETOPOSIDE [Suspect]
     Active Substance: ETOPOSIDE
     Indication: Mantle cell lymphoma
     Dosage: AS A PART OF BEAM AUTO REGIMEN
     Route: 065
     Dates: start: 20190201, end: 20190201
  29. ETOPOSIDE [Suspect]
     Active Substance: ETOPOSIDE
     Dosage: AS A PART OF BEAM AUTO REGIMEN
     Route: 065
     Dates: start: 20190201, end: 20190201
  30. MELPHALAN [Suspect]
     Active Substance: MELPHALAN
     Indication: Mantle cell lymphoma
     Dosage: AS A PART OF BEAM AUTO REGIMEN
     Route: 065
     Dates: start: 20190201
  31. MELPHALAN [Suspect]
     Active Substance: MELPHALAN
     Dosage: AS A PART OF BEAM AUTO REGIMEN
     Route: 065
     Dates: start: 20190201
  32. ZANUBRUTINIB [Suspect]
     Active Substance: ZANUBRUTINIB
     Indication: Mantle cell lymphoma
     Route: 065
     Dates: start: 20230131
  33. SULFAMETHOXAZOLE\TRIMETHOPRIM [Concomitant]
     Active Substance: SULFAMETHOXAZOLE\TRIMETHOPRIM
  34. VALACYCLOVIR [Concomitant]
     Active Substance: VALACYCLOVIR HYDROCHLORIDE
  35. FOLIC ACID [Concomitant]
     Active Substance: FOLIC ACID
  36. MAGNESIUM ASPARTATE [Concomitant]
     Active Substance: MAGNESIUM ASPARTATE
  37. CALCIUM CARBONATE\CHOLECALCIFEROL [Concomitant]
     Active Substance: CALCIUM CARBONATE\CHOLECALCIFEROL

REACTIONS (4)
  - Mantle cell lymphoma recurrent [Unknown]
  - Pancytopenia [Not Recovered/Not Resolved]
  - Mantle cell lymphoma [Unknown]
  - Polychromasia [Unknown]

NARRATIVE: CASE EVENT DATE: 20230101
